FAERS Safety Report 5448085-8 (Version None)
Quarter: 2007Q3

REPORT INFORMATION
  Report Type: 
  Country: None (occurrence: None)
  Receive Date: 20070801
  Receipt Date: 20070525
  Transmission Date: 20080115
  Serious: No
  Sender: FDA-Public Use
  Company Number: 2007-US-000189

PATIENT
  Age: 11 Year
  Sex: Female
  Weight: 30 kg

DRUGS (3)
  1. INCRELEX [Suspect]
     Indication: BODY HEIGHT BELOW NORMAL
     Dosage: 40 UG/KG, BID; 80 MG/KG, BID, SUBCUTANEOUS; 120 MG/KG, BID, SUBCUTANEOUS
     Dates: start: 20061107, end: 20061117
  2. INCRELEX [Suspect]
     Indication: BODY HEIGHT BELOW NORMAL
     Dosage: 40 UG/KG, BID; 80 MG/KG, BID, SUBCUTANEOUS; 120 MG/KG, BID, SUBCUTANEOUS
     Dates: start: 20061118, end: 20061128
  3. INCRELEX [Suspect]
     Indication: BODY HEIGHT BELOW NORMAL
     Dosage: 40 UG/KG, BID; 80 MG/KG, BID, SUBCUTANEOUS; 120 MG/KG, BID, SUBCUTANEOUS
     Dates: start: 20061129, end: 20070115

REACTIONS (2)
  - AGGRESSION [None]
  - INJECTION SITE URTICARIA [None]
